FAERS Safety Report 20906322 (Version 2)
Quarter: 2022Q2

REPORT INFORMATION
  Report Type: Spontaneous
  Country: US (occurrence: US)
  Receive Date: 20220602
  Receipt Date: 20220624
  Transmission Date: 20220721
  Serious: Yes (Hospitalization, Other)
  Sender: FDA-Public Use
  Company Number: US-PFIZER INC-202200768507

PATIENT
  Age: 38 Year
  Sex: Female
  Weight: 86.6 kg

DRUGS (1)
  1. PAXLOVID [Suspect]
     Active Substance: NIRMATRELVIR\RITONAVIR
     Indication: COVID-19 treatment
     Dosage: [PF-07321332 300 MG]/[RITONAVIR 100 MG]; 2X/DAY;
     Route: 048
     Dates: start: 20220513, end: 20220517

REACTIONS (5)
  - Hepatic enzyme increased [Recovered/Resolved]
  - Blood creatinine increased [Recovered/Resolved]
  - Renal injury [Recovered/Resolved]
  - Hepatitis [Recovered/Resolved]
  - Asthenia [Unknown]

NARRATIVE: CASE EVENT DATE: 20220523
